FAERS Safety Report 20517344 (Version 2)
Quarter: 2022Q1

REPORT INFORMATION
  Report Type: Spontaneous
  Country: JP (occurrence: JP)
  Receive Date: 20220225
  Receipt Date: 20220304
  Transmission Date: 20220423
  Serious: Yes (Other)
  Sender: FDA-Public Use
  Company Number: JP-Accord-255066

PATIENT
  Age: 44 Year
  Sex: Female

DRUGS (6)
  1. CLOZAPINE [Interacting]
     Active Substance: CLOZAPINE
     Indication: Schizophrenia
     Dosage: INCREASED TO 50 MG FROM 25 MG +AMP; 12.5 MG(TABLETS, ORALLY AFTER EVERY EVENING MEAL)
     Route: 048
  2. TOZINAMERAN [Interacting]
     Active Substance: TOZINAMERAN
     Indication: Immunisation
     Dosage: ON DAY 28 FIRST DOSE OF VACCINE AND ON DAY 54 SECOND DOSE
  3. LURASIDONE [Concomitant]
     Active Substance: LURASIDONE
     Indication: Schizophrenia
     Dosage: 80 MG LURASIDONE IN APPROXIMATELY ONE MONTH THEN 40 MG
  4. BLONANSERIN [Concomitant]
     Active Substance: BLONANSERIN
     Indication: Schizophrenia
     Dosage: 80 MG BLONANSERIN PATCH IN 10 DAYS THYEN 40 MG
  5. CLONAZEPAM [Concomitant]
     Active Substance: CLONAZEPAM
     Indication: Schizophrenia
  6. LEMBOREXANT [Concomitant]
     Active Substance: LEMBOREXANT
     Indication: Schizophrenia

REACTIONS (5)
  - Leukopenia [Recovered/Resolved]
  - Somnolence [Recovered/Resolved]
  - Salivary hypersecretion [Recovered/Resolved]
  - Drug interaction [Unknown]
  - Neutropenia [Recovered/Resolved]
